FAERS Safety Report 7429938-8 (Version None)
Quarter: 2011Q2

REPORT INFORMATION
  Report Type: 
  Country: None (occurrence: None)
  Receive Date: 20110421
  Receipt Date: 20110419
  Transmission Date: 20111010
  Serious: Yes (Hospitalization)
  Sender: FDA-Public Use
  Company Number: US-B.I. PHARMACEUTICALS,INC./RIDGEFIELD-2011-BP-11189BP

PATIENT
  Age: 87 Year
  Sex: Male

DRUGS (4)
  1. LIPITOR [Concomitant]
     Indication: PROPHYLAXIS
     Dates: start: 20090101
  2. ASPIRIN [Concomitant]
     Indication: ATRIAL FIBRILLATION
     Dates: start: 20060101
  3. PRADAXA [Suspect]
     Indication: ATRIAL FIBRILLATION
     Dosage: 300 MG
     Route: 048
     Dates: start: 20110410, end: 20110417
  4. LASIX [Concomitant]
     Indication: OEDEMA
     Dates: start: 20090101

REACTIONS (1)
  - BREAST PAIN [None]
